FAERS Safety Report 15145103 (Version 1)
Quarter: 2018Q3

REPORT INFORMATION
  Report Type: Spontaneous
  Country: US (occurrence: US)
  Receive Date: 20180713
  Receipt Date: 20180713
  Transmission Date: 20181010
  Serious: No
  Sender: FDA-Public Use
  Company Number: US-INTERCEPT-PMOCA2018000396

PATIENT

DRUGS (1)
  1. OCALIVA [Suspect]
     Active Substance: OBETICHOLIC ACID
     Indication: CHRONIC HEPATITIS C
     Dosage: 10 MG, QD
     Route: 048
     Dates: start: 20170216

REACTIONS (2)
  - Product use in unapproved indication [Unknown]
  - Anxiety [Unknown]

NARRATIVE: CASE EVENT DATE: 20180216
